FAERS Safety Report 6484605-2 (Version None)
Quarter: 2009Q4

REPORT INFORMATION
  Report Type: 
  Country: None (occurrence: None)
  Receive Date: 20091204
  Receipt Date: 20091123
  Transmission Date: 20100525
  Serious: Yes (Life-Threatening, Hospitalization)
  Sender: FDA-Public Use
  Company Number: 1000010126

PATIENT
  Age: 85 Year
  Sex: Male
  Weight: 62 kg

DRUGS (6)
  1. MEMANTINE HCL [Suspect]
     Dosage: 5 MG (5 MG, 1 IN 1 D), ORAL
     Route: 048
     Dates: start: 20090401
  2. KARDEGIC [Concomitant]
  3. NISISCO [Concomitant]
  4. PRAVASTATIN [Concomitant]
  5. DILTIAZEM HCL [Concomitant]
  6. ANDROCUR [Concomitant]

REACTIONS (3)
  - COGNITIVE DISORDER [None]
  - COMA [None]
  - EPILEPSY [None]
